FAERS Safety Report 21285942 (Version 1)
Quarter: 2022Q3

REPORT INFORMATION
  Report Type: Spontaneous
  Country: US (occurrence: None)
  Receive Date: 20220901
  Receipt Date: 20220901
  Transmission Date: 20221027
  Serious: Yes (unspecified)
  Sender: FDA-Public Use
  Company Number: None

PATIENT
  Sex: 0

DRUGS (1)
  1. TAXOL [Suspect]
     Active Substance: PACLITAXEL
     Indication: Neoplasm malignant
     Route: 041
     Dates: start: 20220901, end: 20220901

REACTIONS (2)
  - Infusion related reaction [None]
  - Liquid product physical issue [None]

NARRATIVE: CASE EVENT DATE: 20220901
